FAERS Safety Report 4718493-9 (Version None)
Quarter: 2005Q3

REPORT INFORMATION
  Report Type: 
  Country: None (occurrence: None)
  Receive Date: 20050719
  Receipt Date: 20050503
  Transmission Date: 20060218
  Serious: Yes (Hospitalization, Other)
  Sender: FDA-Public Use
  Company Number: 2005069860

PATIENT
  Age: 58 Year
  Sex: Male
  Weight: 124.7392 kg

DRUGS (5)
  1. CELEBREX [Suspect]
     Indication: SPINAL COLUMN STENOSIS
     Dosage: 400 MG (200 MG, 2 IN 1 D), ORAL
     Route: 048
     Dates: start: 19980101, end: 20010101
  2. ASPIRIN [Concomitant]
  3. VITAMINE E (VITAMIN E) [Concomitant]
  4. PROZAC [Concomitant]
  5. XANAX [Concomitant]

REACTIONS (5)
  - ARTHRITIS [None]
  - HAEMORRHAGE [None]
  - MYOCARDIAL INFARCTION [None]
  - NAUSEA [None]
  - NERVE INJURY [None]
